FAERS Safety Report 19925281 (Version 1)
Quarter: 2021Q4

REPORT INFORMATION
  Report Type: Spontaneous
  Country: FR (occurrence: FR)
  Receive Date: 20211006
  Receipt Date: 20211006
  Transmission Date: 20220303
  Serious: Yes (Hospitalization)
  Sender: FDA-Public Use
  Company Number: FR-BRISTOL-MYERS SQUIBB COMPANY-BMS-2021-099054

PATIENT
  Age: 68 Year
  Sex: Male
  Weight: 82 kg

DRUGS (5)
  1. OPDIVO [Suspect]
     Active Substance: NIVOLUMAB
     Indication: Malignant melanoma
     Route: 042
     Dates: start: 20200911, end: 20210201
  2. MEKTOVI [Suspect]
     Active Substance: BINIMETINIB
     Indication: Nodular melanoma
     Dosage: 15MG 3-0-3
     Route: 048
     Dates: start: 20210304, end: 20210616
  3. MEKTOVI [Suspect]
     Active Substance: BINIMETINIB
     Indication: BRAF V600E mutation positive
  4. BRAFTOVI [Suspect]
     Active Substance: ENCORAFENIB
     Indication: Nodular melanoma
     Dosage: 75MG 6-0-0
     Route: 048
     Dates: start: 20210304, end: 20210616
  5. BRAFTOVI [Suspect]
     Active Substance: ENCORAFENIB
     Indication: BRAF V600E mutation positive

REACTIONS (2)
  - Myositis [Recovered/Resolved]
  - Blood creatine phosphokinase increased [Recovered/Resolved]

NARRATIVE: CASE EVENT DATE: 20210403
